FAERS Safety Report 15674562 (Version 1)
Quarter: 2018Q4

REPORT INFORMATION
  Report Type: Report from Study
  Country: IT (occurrence: IT)
  Receive Date: 20181130
  Receipt Date: 20181130
  Transmission Date: 20190205
  Serious: Yes (Life-Threatening)
  Sender: FDA-Public Use
  Company Number: IT-TEVA-2018-IT-980509

PATIENT
  Age: 82 Year
  Sex: Female

DRUGS (5)
  1. PRADAXA [Suspect]
     Active Substance: DABIGATRAN ETEXILATE MESYLATE
     Indication: ATRIAL FIBRILLATION
     Dosage: 2 DOSAGE FORMS DAILY;
     Route: 048
     Dates: start: 20170101, end: 20180924
  2. TRANSTEC 35 MICROGRAMMI /H CEROTTO TRANSDERMICO [Concomitant]
     Indication: PAIN
     Dates: start: 20180901, end: 20180924
  3. RAMIPRIL. [Suspect]
     Active Substance: RAMIPRIL
     Indication: HYPERTENSIVE HEART DISEASE
     Dosage: 2.5 MILLIGRAM DAILY;
     Route: 048
     Dates: start: 20140101, end: 20180924
  4. METOPROLOL TARTRATE. [Concomitant]
     Active Substance: METOPROLOL TARTRATE
     Dosage: 200 MILLIGRAM DAILY;
     Route: 048
  5. LACIREX 6 MG COMPRESSE RIVESTITE CON FILM [Concomitant]
     Route: 065

REACTIONS (8)
  - Melaena [Recovering/Resolving]
  - Intestinal ischaemia [Recovering/Resolving]
  - Renal failure [Recovering/Resolving]
  - International normalised ratio increased [Recovering/Resolving]
  - Hyperkalaemia [Recovering/Resolving]
  - Hyponatraemia [Recovering/Resolving]
  - Haemoglobin decreased [Recovering/Resolving]
  - Platelet count increased [Recovering/Resolving]

NARRATIVE: CASE EVENT DATE: 20180923
